FAERS Safety Report 9312732 (Version 1)
Quarter: 2013Q2

REPORT INFORMATION
  Report Type: Spontaneous
  Country: BR (occurrence: BR)
  Receive Date: 20130528
  Receipt Date: 20130528
  Transmission Date: 20140414
  Serious: Yes (Hospitalization)
  Sender: FDA-Public Use
  Company Number: BR-PFIZER INC-2013157901

PATIENT
  Age: 70 Year
  Sex: Male
  Weight: 77 kg

DRUGS (1)
  1. VIAGRA [Suspect]
     Indication: INTENTIONAL DRUG MISUSE
     Dosage: 2X/WEEK
     Route: 048

REACTIONS (2)
  - Prostatic disorder [Unknown]
  - Intentional drug misuse [Unknown]
